FAERS Safety Report 21720974 (Version 1)
Quarter: 2022Q4

REPORT INFORMATION
  Report Type: Spontaneous
  Country: US (occurrence: US)
  Receive Date: 20221213
  Receipt Date: 20221213
  Transmission Date: 20230113
  Serious: Yes (Other)
  Sender: FDA-Public Use
  Company Number: US-STRIDES ARCOLAB LIMITED-2022SP012621

PATIENT
  Sex: Male

DRUGS (18)
  1. PREDNISOLONE [Suspect]
     Active Substance: PREDNISOLONE
     Indication: T-cell type acute leukaemia
     Dosage: UNK,CALBG REGIMEN
     Route: 065
  2. DEXAMETHASONE [Suspect]
     Active Substance: DEXAMETHASONE
     Indication: T-cell type acute leukaemia
     Dosage: UNK,HYPERCVAD REGIMEN
     Route: 065
  3. DEXAMETHASONE [Suspect]
     Active Substance: DEXAMETHASONE
     Dosage: UNK, CYCLICAL,IN A COMBINATION WITH VENETOCLAX, 1 CYCLE
     Route: 065
  4. DOXORUBICIN [Suspect]
     Active Substance: DOXORUBICIN
     Indication: T-cell type acute leukaemia
     Dosage: UNK, HYPERCVAD REGIMEN
     Route: 065
  5. DOXORUBICIN [Suspect]
     Active Substance: DOXORUBICIN
     Dosage: UNK, CYCLICAL,IN A COMBINATION WITH VENETOCLAX, 1 CYCLE
     Route: 065
  6. METHOTREXATE [Suspect]
     Active Substance: METHOTREXATE
     Indication: T-cell type acute leukaemia
     Dosage: UNK,HYPERCVAD REGIMEN
     Route: 065
  7. METHOTREXATE [Suspect]
     Active Substance: METHOTREXATE
     Dosage: UNK, CYCLICAL,IN A COMBINATION WITH VENETOCLAX, 1 CYCLE
     Route: 065
  8. CYCLOPHOSPHAMIDE [Suspect]
     Active Substance: CYCLOPHOSPHAMIDE
     Indication: T-cell type acute leukaemia
     Dosage: UNK,CALBG REGIMEN
     Route: 065
  9. CYCLOPHOSPHAMIDE [Suspect]
     Active Substance: CYCLOPHOSPHAMIDE
     Dosage: UNK,HYPER-FRACTIONATED DOSE; HYPERCVAD REGIMEN,(HYPERCVAD REGIMEN).
     Route: 065
  10. CYCLOPHOSPHAMIDE [Suspect]
     Active Substance: CYCLOPHOSPHAMIDE
     Dosage: UNK, CYCLICAL,IN A COMBINATION WITH VENETOCLAX, 1 CYCLE
     Route: 065
  11. DAUNORUBICIN [Suspect]
     Active Substance: DAUNORUBICIN
     Indication: T-cell type acute leukaemia
     Dosage: UNK,CALBG REGIMEN
     Route: 065
  12. VINCRISTINE [Suspect]
     Active Substance: VINCRISTINE
     Indication: T-cell type acute leukaemia
     Dosage: UNK,CALBG REGIMEN
     Route: 065
  13. VINCRISTINE [Suspect]
     Active Substance: VINCRISTINE
     Dosage: UNK,HYPERCVAD REGIMEN
     Route: 065
  14. VINCRISTINE [Suspect]
     Active Substance: VINCRISTINE
     Dosage: UNK, CYCLICAL,IN A COMBINATION WITH VENETOCLAX, 1 CYCLE
     Route: 065
  15. ASPARAGINASE [Suspect]
     Active Substance: ASPARAGINASE
     Indication: T-cell type acute leukaemia
     Dosage: UNK,CALBG REGIMEN
     Route: 065
  16. CYTARABINE [Suspect]
     Active Substance: CYTARABINE
     Indication: T-cell type acute leukaemia
     Dosage: UNK,HYPERCVAD REGIMEN
     Route: 065
  17. CYTARABINE [Suspect]
     Active Substance: CYTARABINE
     Dosage: UNK, CYCLICAL, IN A COMBINATION WITH VENETOCLAX, 1 CYCLE
     Route: 065
  18. VENETOCLAX [Suspect]
     Active Substance: VENETOCLAX
     Indication: T-cell type acute leukaemia
     Dosage: 400 MILLIGRAM/PER DAY
     Route: 065

REACTIONS (1)
  - Drug ineffective [Unknown]
